FAERS Safety Report 4315924-3 (Version None)
Quarter: 2004Q1

REPORT INFORMATION
  Report Type: 
  Country: None (occurrence: None)
  Receive Date: 20040311
  Receipt Date: 20040311
  Transmission Date: 20041129
  Serious: No
  Sender: FDA-Public Use
  Company Number: None

PATIENT

DRUGS (1)
  1. PROZAC [Suspect]
     Dosage: CAPSULE 93CAPSULES/3 MTHS 20 MG

REACTIONS (1)
  - PHARMACEUTICAL PRODUCT COMPLAINT [None]
